FAERS Safety Report 5573876-2 (Version None)
Quarter: 2007Q4

REPORT INFORMATION
  Report Type: 
  Country: None (occurrence: None)
  Receive Date: 20071226
  Receipt Date: 20071214
  Transmission Date: 20080405
  Serious: Yes (Other)
  Sender: FDA-Public Use
  Company Number: US-PFIZER INC-2007105392

PATIENT
  Sex: Female

DRUGS (6)
  1. ALPRAZOLAM [Suspect]
     Indication: ANXIETY
     Dosage: DAILY DOSE:.5MG
     Route: 048
  2. ALPRAZOLAM [Suspect]
     Indication: PANIC DISORDER
  3. SEROQUEL [Concomitant]
  4. LAMICTAL [Concomitant]
  5. LEXAPRO [Concomitant]
  6. LISDEXAMFETAMINE DIMESYLATE [Concomitant]

REACTIONS (9)
  - ANXIETY [None]
  - BIPOLAR DISORDER [None]
  - CONDITION AGGRAVATED [None]
  - DRUG INEFFECTIVE [None]
  - DRUG TOLERANCE [None]
  - FORMICATION [None]
  - INTENTIONAL DRUG MISUSE [None]
  - PANIC REACTION [None]
  - WEIGHT INCREASED [None]
